FAERS Safety Report 18024834 (Version 1)
Quarter: 2020Q3

REPORT INFORMATION
  Report Type: Spontaneous
  Country: US (occurrence: US)
  Receive Date: 20200715
  Receipt Date: 20200715
  Transmission Date: 20201103
  Serious: Yes (Death)
  Sender: FDA-Public Use
  Company Number: None

PATIENT
  Age: 82 Year
  Sex: Male
  Weight: 76.5 kg

DRUGS (1)
  1. XTANDI [Suspect]
     Active Substance: ENZALUTAMIDE
     Indication: PROSTATE CANCER METASTATIC
     Dosage: ?          QUANTITY:4 CAPSULE(S);?
     Route: 048
     Dates: start: 20200602, end: 20200626

REACTIONS (7)
  - Bedridden [None]
  - Abdominal pain [None]
  - Aphasia [None]
  - Syncope [None]
  - Dysphagia [None]
  - Arrhythmia [None]
  - Disorientation [None]

NARRATIVE: CASE EVENT DATE: 20200616
